FAERS Safety Report 6791119-9 (Version None)
Quarter: 2010Q2

REPORT INFORMATION
  Report Type: 
  Country: None (occurrence: None)
  Receive Date: 20100624
  Receipt Date: 20100615
  Transmission Date: 20101027
  Serious: Yes (Other)
  Sender: FDA-Public Use
  Company Number: GXKR2010GB06606

PATIENT
  Age: 68 Year
  Sex: Male

DRUGS (8)
  1. LEVODOPA+CARBIDOPA (NGX) [Suspect]
     Indication: PARKINSON'S DISEASE
     Dosage: 300 MG LEVODOPA/DAY
     Route: 065
     Dates: start: 20030101
  2. LEVODOPA+CARBIDOPA (NGX) [Suspect]
     Dosage: GRADUALLY INCREASED TO 700 MG LEVODOPA/DAY
     Route: 065
     Dates: start: 20060101
  3. LEVODOPA+CARBIDOPA (NGX) [Suspect]
     Dosage: 1400 MG/DAY LEVODOPA/DAY
     Route: 065
     Dates: start: 20070101
  4. LEVODOPA+CARBIDOPA (NGX) [Suspect]
     Dosage: UNK
     Route: 065
     Dates: start: 20080101
  5. ROPINIROLE (NGX) [Suspect]
     Indication: PARKINSON'S DISEASE
     Route: 065
  6. ROPINIROLE (NGX) [Suspect]
     Dosage: 9 MG/DAY
     Route: 065
  7. ROPINIROLE (NGX) [Suspect]
     Dosage: GRADUALLY INCREASED TO 15 MG/DAY
     Route: 065
     Dates: start: 20060101, end: 20070101
  8. ENTACAPONE [Concomitant]
     Dosage: 400 MG/DAY
     Dates: start: 20060101

REACTIONS (3)
  - HYPERSEXUALITY [None]
  - OBSESSIVE-COMPULSIVE DISORDER [None]
  - STEREOTYPY [None]
